FAERS Safety Report 19150020 (Version 7)
Quarter: 2021Q3

REPORT INFORMATION
  Report Type: Spontaneous
  Country: BR (occurrence: BR)
  Receive Date: 20210417
  Receipt Date: 20210719
  Transmission Date: 20211014
  Serious: Yes (Other)
  Sender: FDA-Public Use
  Company Number: NVSC2020BR323943

PATIENT
  Age: 2 Year
  Sex: Female
  Weight: 16.1 kg

DRUGS (3)
  1. PREDNISOLONE. [Concomitant]
     Active Substance: PREDNISOLONE
     Dosage: 1 MG/KG, QD
     Route: 048
     Dates: start: 20201118
  2. PREDNISOLONE. [Concomitant]
     Active Substance: PREDNISOLONE
     Indication: PROPHYLAXIS
     Dosage: 2 MG/KG, QD
     Route: 065
     Dates: start: 20201118, end: 20210305
  3. ZOLGENSMA [Suspect]
     Active Substance: ONASEMNOGENE ABEPARVOVEC-XIOI
     Indication: SPINAL MUSCULAR ATROPHY
     Dosage: 90.8 ML, ONCE/SINGLE
     Route: 042
     Dates: start: 20201119, end: 20201119

REACTIONS (6)
  - Alanine aminotransferase increased [Unknown]
  - Thrombocytopenia [Recovering/Resolving]
  - Hepatic enzyme increased [Recovering/Resolving]
  - Transaminases increased [Recovered/Resolved]
  - Transaminases increased [Recovered/Resolved]
  - Aspartate aminotransferase increased [Unknown]

NARRATIVE: CASE EVENT DATE: 20201119
